FAERS Safety Report 16156133 (Version 1)
Quarter: 2019Q2

REPORT INFORMATION
  Report Type: Spontaneous
  Country: US (occurrence: US)
  Receive Date: 20190404
  Receipt Date: 20190404
  Transmission Date: 20190711
  Serious: No
  Sender: FDA-Public Use
  Company Number: US-TEVA-2019-US-1034268

PATIENT
  Age: 52 Year
  Sex: Female
  Weight: 140.29 kg

DRUGS (1)
  1. EQ MICONAZOLE 3 [Suspect]
     Active Substance: MICONAZOLE
     Dates: start: 20190322, end: 20190324

REACTIONS (2)
  - Drug ineffective [Unknown]
  - Product solubility abnormal [Unknown]

NARRATIVE: CASE EVENT DATE: 20190325
